FAERS Safety Report 5855882-3 (Version None)
Quarter: 2008Q3

REPORT INFORMATION
  Report Type: 
  Country: None (occurrence: None)
  Receive Date: 20080821
  Receipt Date: 20080821
  Transmission Date: 20090109
  Serious: Yes (Other)
  Sender: FDA-Public Use
  Company Number: None

PATIENT
  Age: 45 Year
  Sex: Male
  Weight: 164.2021 kg

DRUGS (2)
  1. ACTOS [Suspect]
     Indication: TYPE 2 DIABETES MELLITUS
     Dosage: 30 MG DAILY PO
     Route: 048
     Dates: start: 20080201, end: 20080710
  2. ACTOS [Suspect]
     Indication: TYPE 2 DIABETES MELLITUS
     Dosage: 45 MG DAILY PO
     Route: 048
     Dates: start: 20080710, end: 20080815

REACTIONS (2)
  - CONDITION AGGRAVATED [None]
  - OEDEMA PERIPHERAL [None]
